FAERS Safety Report 19609823 (Version 6)
Quarter: 2022Q1

REPORT INFORMATION
  Report Type: Spontaneous
  Country: JP (occurrence: JP)
  Receive Date: 20210726
  Receipt Date: 20220316
  Transmission Date: 20220424
  Serious: Yes (Hospitalization, Disabling)
  Sender: FDA-Public Use
  Company Number: JP-CELGENE-JPN-20210703717

PATIENT
  Sex: Female

DRUGS (5)
  1. VIDAZA [Suspect]
     Active Substance: AZACITIDINE
     Indication: Acute myeloid leukaemia
     Dosage: 110 MILLIGRAM
     Route: 058
     Dates: start: 20210712, end: 20210713
  2. VIDAZA [Suspect]
     Active Substance: AZACITIDINE
     Dosage: 110 MILLIGRAM
     Route: 058
     Dates: start: 20210726, end: 20211014
  3. VENCLEXTA [Suspect]
     Active Substance: VENETOCLAX
     Indication: Acute myeloid leukaemia
     Dosage: 110100 MILLIGRAM
     Route: 048
     Dates: start: 20210712, end: 20210713
  4. VENCLEXTA [Suspect]
     Active Substance: VENETOCLAX
     Dosage: 110100 MILLIGRAM
     Route: 048
     Dates: start: 20210726, end: 2021
  5. VENCLEXTA [Suspect]
     Active Substance: VENETOCLAX
     Dosage: 50 MILLIGRAM
     Route: 048
     Dates: start: 20210811, end: 20210921

REACTIONS (6)
  - Blood lactate dehydrogenase increased [Recovered/Resolved]
  - Renal disorder [Recovered/Resolved]
  - Bone marrow tumour cell infiltration [Unknown]
  - Myelosuppression [Unknown]
  - Tumour lysis syndrome [Recovered/Resolved]
  - Blood creatinine increased [Recovered/Resolved]

NARRATIVE: CASE EVENT DATE: 20210101
